FAERS Safety Report 24425331 (Version 1)
Quarter: 2024Q4

REPORT INFORMATION
  Report Type: Spontaneous
  Country: BR (occurrence: BR)
  Receive Date: 20241011
  Receipt Date: 20241011
  Transmission Date: 20250115
  Serious: Yes (Other)
  Sender: Haleon PLC
  Company Number: BR-002147023-NVSC2024BR197958

PATIENT
  Age: 41 Year
  Sex: Female
  Weight: 87 kg

DRUGS (1)
  1. DICLOFENAC [Suspect]
     Active Substance: DICLOFENAC
     Indication: Product used for unknown indication
     Route: 065

REACTIONS (4)
  - Psoriatic arthropathy [Unknown]
  - Thyroid disorder [Unknown]
  - Leiomyoma [Unknown]
  - Drug hypersensitivity [Unknown]
